FAERS Safety Report 6212013-8 (Version None)
Quarter: 2009Q2

REPORT INFORMATION
  Report Type: 
  Country: None (occurrence: None)
  Receive Date: 20090602
  Receipt Date: 20090520
  Transmission Date: 20091009
  Serious: Yes (Other)
  Sender: FDA-Public Use
  Company Number: US-PFIZER INC-2009217042

PATIENT
  Sex: Female
  Weight: 77.098 kg

DRUGS (2)
  1. LYRICA [Suspect]
     Route: 048
     Dates: start: 20090101, end: 20090520
  2. SERTRALINE [Concomitant]
     Dosage: DAILY
     Route: 048

REACTIONS (1)
  - CARBOHYDRATE ANTIGEN 125 INCREASED [None]
